FAERS Safety Report 7449503-6 (Version None)
Quarter: 2011Q2

REPORT INFORMATION
  Report Type: 
  Country: None (occurrence: None)
  Receive Date: 20110502
  Receipt Date: 20110420
  Transmission Date: 20111010
  Serious: Yes (Hospitalization)
  Sender: FDA-Public Use
  Company Number: US-BAYER-2011-032055

PATIENT
  Age: 82 Year
  Sex: Male

DRUGS (14)
  1. COUMADIN [Suspect]
     Dosage: UNK
     Dates: start: 20100924, end: 20110103
  2. PROZAC [Concomitant]
  3. COREG [Concomitant]
  4. SIMVASTATIN [Concomitant]
  5. APIXABAN [Suspect]
     Indication: THROMBOSIS PROPHYLAXIS
     Dosage: 10 MG, QD
     Route: 048
     Dates: start: 20100108, end: 20100119
  6. LASIX [Concomitant]
  7. METOLAZONE [Concomitant]
  8. NITROGLYCERIN [Concomitant]
  9. LIDOCAINE [Concomitant]
  10. DECITABINE [Concomitant]
     Indication: MYELODYSPLASTIC SYNDROME
     Dosage: UNK
     Dates: start: 20100301
  11. COLCHICINE [Concomitant]
  12. LISINOPRIL [Concomitant]
  13. WARFARIN SODIUM [Suspect]
     Indication: THROMBOSIS PROPHYLAXIS
     Dosage: UNK
     Route: 048
     Dates: start: 20100108, end: 20100118
  14. ASPIRIN [Suspect]
     Dosage: 81 MG, QD

REACTIONS (5)
  - FATIGUE [None]
  - RECTAL HAEMORRHAGE [None]
  - HAEMATOCHEZIA [None]
  - PANCYTOPENIA [None]
  - GASTROINTESTINAL HAEMORRHAGE [None]
